FAERS Safety Report 10494815 (Version 1)
Quarter: 2014Q4

REPORT INFORMATION
  Report Type: Spontaneous
  Country: FR (occurrence: FR)
  Receive Date: 20141003
  Receipt Date: 20141003
  Transmission Date: 20150528
  Serious: Yes (Hospitalization)
  Sender: FDA-Public Use
  Company Number: FR-AMGEN-FRASP2014074909

PATIENT
  Age: 16 Year
  Sex: Female

DRUGS (11)
  1. ANSATIPINE [Concomitant]
     Active Substance: RIFABUTIN
     Dosage: UNK
  2. EPIVIR [Concomitant]
     Active Substance: LAMIVUDINE
     Dosage: UNK
  3. ZIAGEN [Concomitant]
     Active Substance: ABACAVIR SULFATE
     Dosage: UNK
  4. NPLATE [Suspect]
     Active Substance: ROMIPLOSTIM
     Indication: THROMBOCYTOPENIA
     Dosage: 50 MUG, UNK
     Route: 058
     Dates: start: 20140804, end: 20140902
  5. ISONIAZIDE [Concomitant]
     Active Substance: ISONIAZID
     Dosage: UNK
  6. BACTRIM [Concomitant]
     Active Substance: SULFAMETHOXAZOLE\TRIMETHOPRIM
     Dosage: UNK
  7. PIRILENE [Concomitant]
     Active Substance: PYRAZINAMIDE
     Dosage: UNK
  8. SUSTIVA [Concomitant]
     Active Substance: EFAVIRENZ
     Dosage: UNK
  9. CLAIRYG [Concomitant]
     Active Substance: HUMAN IMMUNOGLOBULIN G
     Dosage: UNK
  10. DEROXAT [Concomitant]
     Active Substance: PAROXETINE HYDROCHLORIDE
     Dosage: UNK
  11. LAROXYL [Concomitant]
     Active Substance: AMITRIPTYLINE
     Dosage: UNK

REACTIONS (1)
  - Pain [Recovered/Resolved]

NARRATIVE: CASE EVENT DATE: 20140902
